FAERS Safety Report 15238092 (Version 1)
Quarter: 2018Q3

REPORT INFORMATION
  Report Type: Spontaneous
  Country: GB (occurrence: GB)
  Receive Date: 20180803
  Receipt Date: 20180803
  Transmission Date: 20181010
  Serious: Yes (Other)
  Sender: FDA-Public Use
  Company Number: GB-TEVA-2018-GB-933587

PATIENT
  Age: 73 Year
  Sex: Male
  Weight: 86 kg

DRUGS (11)
  1. DAKTACORT [Concomitant]
     Active Substance: HYDROCORTISONE\MICONAZOLE NITRATE
     Dosage: 2 DOSAGE FORMS DAILY; TO FEET
     Route: 065
     Dates: start: 20180521, end: 20180618
  2. DIPROBASE [Concomitant]
     Active Substance: CHLOROCRESOL
     Route: 065
     Dates: start: 20180416, end: 20180426
  3. AQUEOUS CREAM [Concomitant]
     Route: 065
     Dates: start: 20180521, end: 20180618
  4. FUCIBET [Concomitant]
     Dosage: 2 DOSAGE FORMS DAILY; TO INFLAMED PATCHES
     Route: 065
     Dates: start: 20180607
  5. DOXYCYCLINE. [Suspect]
     Active Substance: DOXYCYCLINE
     Route: 065
     Dates: start: 20180703
  6. HYDROXYZINE [Concomitant]
     Active Substance: HYDROXYZINE HYDROCHLORIDE
     Dosage: 1 DOSAGE FORMS DAILY; NIGHT
     Route: 065
     Dates: start: 20180521, end: 20180618
  7. SALBUTAMOL [Concomitant]
     Active Substance: ALBUTEROL
     Route: 065
     Dates: start: 20170307
  8. ZEROBASE [Concomitant]
     Indication: DRY SKIN
     Dosage: APPLY AS OFTEN
     Route: 065
     Dates: start: 20180703
  9. ATORVASTATIN [Concomitant]
     Active Substance: ATORVASTATIN
     Dosage: 1 DOSAGE FORMS DAILY;
     Route: 065
     Dates: start: 20160106
  10. FORMOTEROL FUMARATE [Concomitant]
     Active Substance: FORMOTEROL FUMARATE
     Dosage: 2 DOSAGE FORMS DAILY;
     Route: 055
     Dates: start: 20170307
  11. BETNOVATE [Concomitant]
     Active Substance: BETAMETHASONE
     Dosage: APPLY TO THE AFFECTED AREA(S) ONCE OR TWICE A DAY
     Route: 065
     Dates: start: 20180416, end: 20180611

REACTIONS (2)
  - Arthritis allergic [Recovering/Resolving]
  - Arthritis reactive [Unknown]

NARRATIVE: CASE EVENT DATE: 20180703
